FAERS Safety Report 6700673-4 (Version None)
Quarter: 2010Q2

REPORT INFORMATION
  Report Type: 
  Country: None (occurrence: None)
  Receive Date: 20100428
  Receipt Date: 20100421
  Transmission Date: 20101027
  Serious: Yes (Hospitalization)
  Sender: FDA-Public Use
  Company Number: PHHO2009IT12687

PATIENT
  Sex: Male
  Weight: 60 kg

DRUGS (3)
  1. CERTICAN [Suspect]
     Indication: RENAL TRANSPLANT
     Dosage: 1 MG
     Route: 048
     Dates: start: 20090619
  2. NEORAL [Suspect]
     Dosage: 100 MG
     Route: 048
     Dates: start: 20090619
  3. MEDROL [Suspect]
     Indication: RENAL TRANSPLANT
     Dosage: 2MG
     Route: 048
     Dates: start: 20090619

REACTIONS (3)
  - BLOOD CREATININE INCREASED [None]
  - DRUG INEFFECTIVE [None]
  - KIDNEY TRANSPLANT REJECTION [None]
